FAERS Safety Report 4719568-0 (Version None)
Quarter: 2005Q3

REPORT INFORMATION
  Report Type: 
  Country: None (occurrence: None)
  Receive Date: 20050721
  Receipt Date: 20050420
  Transmission Date: 20060218
  Serious: Yes (Other)
  Sender: FDA-Public Use
  Company Number: US-BRISTOL-MYERS SQUIBB COMPANY-12945309

PATIENT
  Age: 67 Year

DRUGS (1)
  1. PARAPLATIN AQ [Suspect]
     Indication: NON-SMALL CELL LUNG CANCER
     Route: 042
     Dates: start: 20050112, end: 20050112

REACTIONS (2)
  - DYSPNOEA [None]
  - RASH [None]
